FAERS Safety Report 9744533 (Version 2)
Quarter: 2013Q4

REPORT INFORMATION
  Report Type: Spontaneous
  Country: DK (occurrence: IE)
  Receive Date: 20131210
  Receipt Date: 20131220
  Transmission Date: 20140711
  Serious: Yes (Disabling)
  Sender: FDA-Public Use
  Company Number: IE-FRI-1000052119

PATIENT
  Sex: Male

DRUGS (3)
  1. LEXAPRO [Suspect]
     Route: 048
  2. QUETIAPINE [Concomitant]
     Indication: INSOMNIA
  3. LIBRIUM [Concomitant]
     Indication: PANIC DISORDER

REACTIONS (9)
  - Agitation [Unknown]
  - Anxiety [Unknown]
  - Depressed mood [Unknown]
  - Drug ineffective [Unknown]
  - Drug withdrawal syndrome [Unknown]
  - Paranoia [Unknown]
  - Suicidal ideation [Unknown]
  - Activation syndrome [Unknown]
  - Somnolence [Unknown]
